FAERS Safety Report 5393380-4 (Version None)
Quarter: 2007Q3

REPORT INFORMATION
  Report Type: 
  Country: None (occurrence: None)
  Receive Date: 20070723
  Receipt Date: 20070713
  Transmission Date: 20080115
  Serious: Yes (Hospitalization, Other)
  Sender: FDA-Public Use
  Company Number: PHEH2007US09465

PATIENT
  Age: 40 Year
  Sex: Male
  Weight: 85.714 kg

DRUGS (1)
  1. CLOZARIL [Suspect]
     Dates: end: 20070625

REACTIONS (5)
  - HYPERGLYCAEMIA [None]
  - MEDICATION ERROR [None]
  - NEUTROPHIL COUNT DECREASED [None]
  - PNEUMONIA [None]
  - WHITE BLOOD CELL COUNT DECREASED [None]
